FAERS Safety Report 6342311-9 (Version None)
Quarter: 2009Q3

REPORT INFORMATION
  Report Type: 
  Country: None (occurrence: None)
  Receive Date: 20090907
  Receipt Date: 20090827
  Transmission Date: 20100115
  Serious: Yes (Other)
  Sender: FDA-Public Use
  Company Number: US-BAXTER-2009BH013304

PATIENT
  Age: 32 Year
  Sex: Female

DRUGS (8)
  1. GAMMAGARD LIQUID [Suspect]
     Indication: ABORTION SPONTANEOUS
     Route: 042
     Dates: start: 20081101, end: 20090712
  2. GAMMAGARD LIQUID [Suspect]
     Indication: OFF LABEL USE
     Route: 042
     Dates: start: 20081101, end: 20090712
  3. PREDNISONE [Concomitant]
  4. PROGESTERONE [Concomitant]
  5. METFORMIN HCL [Concomitant]
     Indication: DIABETES MELLITUS
  6. SYNTHROID [Concomitant]
  7. VITAMIN E [Concomitant]
  8. LOVENOX [Concomitant]

REACTIONS (3)
  - DRUG EXPOSURE DURING PREGNANCY [None]
  - HEPATITIS B ANTIBODY POSITIVE [None]
  - INFLUENZA LIKE ILLNESS [None]
